FAERS Safety Report 16990578 (Version 1)
Quarter: 2019Q4

REPORT INFORMATION
  Report Type: Spontaneous
  Country: GB (occurrence: GB)
  Receive Date: 20191104
  Receipt Date: 20191104
  Transmission Date: 20200122
  Serious: Yes (Other)
  Sender: FDA-Public Use
  Company Number: GB-MYLANLABS-2019M1104778

PATIENT
  Age: 33 Year
  Sex: Female

DRUGS (2)
  1. DESOGESTREL [Concomitant]
     Active Substance: DESOGESTREL
     Dosage: 75 MICROGRAM, QD (SAME TIME EACH DAY)
  2. CLARITHROMYCIN. [Suspect]
     Active Substance: CLARITHROMYCIN
     Indication: LOWER RESPIRATORY TRACT INFECTION
     Dosage: COURSE COMPLETED
     Dates: start: 201902

REACTIONS (3)
  - Abdominal pain upper [Recovered/Resolved]
  - Bile duct stone [Recovered/Resolved]
  - Liver function test abnormal [Recovered/Resolved]

NARRATIVE: CASE EVENT DATE: 201902
